FAERS Safety Report 8880847 (Version 6)
Quarter: 2013Q4

REPORT INFORMATION
  Report Type: Spontaneous
  Country: GB (occurrence: GB)
  Receive Date: 20121101
  Receipt Date: 20131227
  Transmission Date: 20140711
  Serious: Yes (Hospitalization, Disabling, Other)
  Sender: FDA-Public Use
  Company Number: GB-JNJFOC-20121016705

PATIENT
  Age: 72 Year
  Sex: Male
  Weight: 96.14 kg

DRUGS (5)
  1. XARELTO [Suspect]
     Indication: THROMBOSIS PROPHYLAXIS
     Route: 048
     Dates: start: 20120727, end: 20120831
  2. XARELTO [Suspect]
     Indication: HIP ARTHROPLASTY
     Route: 048
     Dates: start: 20120727, end: 20120831
  3. RAMIPRIL [Concomitant]
     Route: 065
     Dates: start: 20120727
  4. OMEPRAZOLE [Concomitant]
     Route: 065
     Dates: start: 20120727
  5. STEMETIL [Concomitant]
     Route: 065
     Dates: start: 20120727

REACTIONS (15)
  - Local swelling [Recovered/Resolved]
  - Fluid retention [Recovering/Resolving]
  - Hypoaesthesia [Recovering/Resolving]
  - Pain in extremity [Recovering/Resolving]
  - Gait disturbance [Recovering/Resolving]
  - Diarrhoea [Recovering/Resolving]
  - Prostatomegaly [Recovering/Resolving]
  - Heart rate increased [Recovering/Resolving]
  - Urinary retention [Recovered/Resolved]
  - Anaemia [Recovering/Resolving]
  - Joint swelling [Recovering/Resolving]
  - Vitamin B12 deficiency [Not Recovered/Not Resolved]
  - Pain [Recovered/Resolved]
  - Drug hypersensitivity [Recovering/Resolving]
  - Urticaria [Recovering/Resolving]
